FAERS Safety Report 15743443 (Version 2)
Quarter: 2018Q4

REPORT INFORMATION
  Report Type: Spontaneous
  Country: US (occurrence: US)
  Receive Date: 20181220
  Receipt Date: 20181220
  Transmission Date: 20190205
  Serious: No
  Sender: FDA-Public Use
  Company Number: US-B.I. PHARMACEUTICALS,INC./RIDGEFIELD-2018-BI-059797

PATIENT
  Age: 79 Year
  Sex: Female

DRUGS (3)
  1. ATROVENT [Suspect]
     Active Substance: IPRATROPIUM BROMIDE
     Dosage: TWO INHALATION FOUR TIMES A DAY; FORM STRENGTH:17 MCG;ACTION(S) TAKEN WITH PRODUCT: DOSE NOT CHANGED
     Route: 055
     Dates: start: 201808
  2. ALPRAZOLAM. [Concomitant]
     Active Substance: ALPRAZOLAM
     Indication: MENTAL DISORDER
     Dosage: ONE TABLET TWICE A DAY AND  A HALF A TABLET TWICE DAY;  FORM STRENGTH: 1 MG; FORMULATION: TABLET
     Route: 048
  3. ATROVENT [Suspect]
     Active Substance: IPRATROPIUM BROMIDE
     Indication: CHRONIC OBSTRUCTIVE PULMONARY DISEASE
     Dosage: FORM STRENGTH: 17 MCG; FORMULATION: INHALATION AEROSOL  ACTION(S) TAKEN WITH PRODUCT: DRUG REDUCED
     Route: 055

REACTIONS (2)
  - Respiratory disorder [Unknown]
  - Hydrocephalus [Not Recovered/Not Resolved]

NARRATIVE: CASE EVENT DATE: 20180611
